FAERS Safety Report 15718833 (Version 1)
Quarter: 2018Q4

REPORT INFORMATION
  Report Type: Spontaneous
  Country: BG (occurrence: BG)
  Receive Date: 20181213
  Receipt Date: 20181213
  Transmission Date: 20190205
  Serious: Yes (Hospitalization, Other)
  Sender: FDA-Public Use
  Company Number: BG-ASTRAZENECA-2018SF61524

PATIENT
  Age: 71 Year
  Sex: Male

DRUGS (10)
  1. ROSUVASTATIN. [Concomitant]
     Active Substance: ROSUVASTATIN
  2. RAMIPRIL. [Concomitant]
     Active Substance: RAMIPRIL
  3. ISOKET [Concomitant]
     Active Substance: ISOSORBIDE DINITRATE
     Dosage: ON DEMAND
  4. ESOMEPRAZOLE. [Concomitant]
     Active Substance: ESOMEPRAZOLE MAGNESIUM
  5. ACETYLSALICYLIC ACID [Concomitant]
     Active Substance: ASPIRIN
  6. TORASEMIDE [Concomitant]
     Active Substance: TORSEMIDE
  7. BRILIQUE [Suspect]
     Active Substance: TICAGRELOR
     Route: 048
  8. METOPROLOL. [Concomitant]
     Active Substance: METOPROLOL
  9. MILURIT [Concomitant]
     Active Substance: ALLOPURINOL
  10. METFORMIN [Concomitant]
     Active Substance: METFORMIN HYDROCHLORIDE
     Dosage: 3X850MG/DAY

REACTIONS (3)
  - Vascular stent stenosis [Unknown]
  - Angina unstable [Unknown]
  - Angina pectoris [Unknown]

NARRATIVE: CASE EVENT DATE: 201801
